FAERS Safety Report 26130047 (Version 1)
Quarter: 2025Q4

REPORT INFORMATION
  Report Type: Spontaneous
  Country: US (occurrence: US)
  Receive Date: 20251208
  Receipt Date: 20251208
  Transmission Date: 20260118
  Serious: No
  Sender: ABBVIE
  Company Number: US-ABBVIE-6577983

PATIENT

DRUGS (2)
  1. SYNTHROID [Suspect]
     Active Substance: LEVOTHYROXINE SODIUM
     Indication: Product used for unknown indication
     Dosage: FORM STRENGTH: 150 MCG?TAKE 3 TABLET
     Route: 048
  2. SYNTHROID [Suspect]
     Active Substance: LEVOTHYROXINE SODIUM
     Indication: Product used for unknown indication
     Dosage: FORM STRENGTH: 150 MCG?TAKE 1 TABLET BY MOUTH ONCE DAILY IN THE MORNING ON AN EMPTY STOMACH?QUANT...
     Route: 048
     Dates: start: 1998

REACTIONS (4)
  - Weight increased [Recovering/Resolving]
  - Body temperature decreased [Recovered/Resolved]
  - Joint swelling [Recovered/Resolved]
  - Suspected counterfeit product [Unknown]
